FAERS Safety Report 8256473-X (Version None)
Quarter: 2012Q2

REPORT INFORMATION
  Report Type: 
  Country: None (occurrence: None)
  Receive Date: 20120403
  Receipt Date: 20120327
  Transmission Date: 20120825
  Serious: Yes (Death, Other)
  Sender: FDA-Public Use
  Company Number: JP-SANOFI-AVENTIS-2012SA017049

PATIENT
  Age: 70 Year
  Sex: Female

DRUGS (3)
  1. FAMOTIDINE [Concomitant]
     Route: 048
  2. ZOLPIDEM [Suspect]
     Route: 048
  3. LENALIDOMIDE [Suspect]
     Route: 065

REACTIONS (1)
  - HAEMOLYTIC ANAEMIA [None]
